FAERS Safety Report 10652302 (Version 1)
Quarter: 2014Q4

REPORT INFORMATION
  Report Type: Report from Study
  Country: US (occurrence: US)
  Receive Date: 20141215
  Receipt Date: 20141215
  Transmission Date: 20150529
  Serious: Yes (Other)
  Sender: FDA-Public Use
  Company Number: US-SA-2014SA169946

PATIENT
  Sex: Female

DRUGS (1)
  1. LANTUS [Suspect]
     Active Substance: INSULIN GLARGINE
     Indication: DIABETES MELLITUS
     Route: 065

REACTIONS (18)
  - Diabetes mellitus [Unknown]
  - Gout [Unknown]
  - Depression [Unknown]
  - Carpal tunnel syndrome [Unknown]
  - Psoriatic arthropathy [Unknown]
  - Neuropathy peripheral [Unknown]
  - Gravitational oedema [Unknown]
  - Anxiety [Unknown]
  - Hypertension [Unknown]
  - Hyperlipidaemia [Unknown]
  - Chronic kidney disease [Unknown]
  - Cellulitis [Unknown]
  - Mass [Unknown]
  - Tendonitis [Unknown]
  - Paronychia [Unknown]
  - Glomerulonephritis [Unknown]
  - Obesity [Unknown]
  - Headache [Unknown]
